FAERS Safety Report 7664613-6 (Version None)
Quarter: 2011Q3

REPORT INFORMATION
  Report Type: 
  Country: None (occurrence: None)
  Receive Date: 20110806
  Receipt Date: 20110110
  Transmission Date: 20111222
  Serious: No
  Sender: FDA-Public Use
  Company Number: US-ABBOTT-11P-163-0696091-00

PATIENT
  Sex: Female
  Weight: 54.48 kg

DRUGS (5)
  1. FISH OIL [Concomitant]
     Indication: PRODUCT USED FOR UNKNOWN INDICATION
  2. ASPIRIN [Concomitant]
     Indication: PRODUCT USED FOR UNKNOWN INDICATION
  3. CALCIUM W/VITAMIN D [Concomitant]
     Indication: PRODUCT USED FOR UNKNOWN INDICATION
  4. CRESTOR [Concomitant]
     Indication: PRODUCT USED FOR UNKNOWN INDICATION
  5. NIASPAN [Suspect]
     Indication: FAMILIAL RISK FACTOR
     Dosage: AT BEDTIME
     Dates: start: 20101227

REACTIONS (3)
  - FEELING HOT [None]
  - FLUSHING [None]
  - SKIN HAEMORRHAGE [None]
